FAERS Safety Report 24191151 (Version 1)
Quarter: 2024Q3

REPORT INFORMATION
  Report Type: Spontaneous
  Country: FR (occurrence: FR)
  Receive Date: 20240808
  Receipt Date: 20240808
  Transmission Date: 20241016
  Serious: Yes (Other)
  Sender: BOEHRINGER INGELHEIM
  Company Number: FR-BoehringerIngelheim-2024-BI-043938

PATIENT
  Age: 17 Year
  Sex: Female

DRUGS (10)
  1. CLONIDINE [Suspect]
     Active Substance: CLONIDINE
     Indication: Aicardi-Goutieres syndrome
     Dates: start: 20240701, end: 20240701
  2. AMITRIPTYLINE HYDROCHLORIDE [Concomitant]
     Active Substance: AMITRIPTYLINE HYDROCHLORIDE
     Indication: Product used for unknown indication
     Dosage: 12 DROPS IN THE EVENING, 15 DROPS
     Dates: start: 20240704
  3. BARICITINIB [Concomitant]
     Active Substance: BARICITINIB
     Indication: Product used for unknown indication
  4. GABAPENTIN [Concomitant]
     Active Substance: GABAPENTIN
     Indication: Product used for unknown indication
     Dosage: MORNING NOON EVENING;
  5. BACTRIM [Concomitant]
     Active Substance: SULFAMETHOXAZOLE\TRIMETHOPRIM
     Indication: Product used for unknown indication
     Dosage: MONDAY-WEDNESDAY-FRIDAY
  6. RIVOTRIL [Concomitant]
     Active Substance: CLONAZEPAM
     Indication: Product used for unknown indication
     Dosage: 8 DROPS MORNING AND NOON, 12 DROPS IN THE EVENING
  7. POLYETHYLENE GLYCOLS [Concomitant]
     Active Substance: POLYETHYLENE GLYCOLS
     Indication: Product used for unknown indication
     Dosage: 2 SACHETS MORNING AND NOON 1 DAY/2
  8. VOGALENE [Concomitant]
     Active Substance: METOPIMAZINE
     Indication: Product used for unknown indication
     Dosage: 3 TO 6 A DAY IN 3 DOSES IF NEEDED.
  9. ESOMEPRAZOLE [Concomitant]
     Active Substance: ESOMEPRAZOLE
     Indication: Product used for unknown indication
  10. SONDALIS HP ENERGY Fibre [Concomitant]
     Indication: Product used for unknown indication
     Dosage: 850 ML AT NIGHT AT 70ML/H AND 150 ML

REACTIONS (3)
  - Hypotension [Recovered/Resolved]
  - Somnolence [Recovered/Resolved]
  - Wrong dose [Recovered/Resolved]

NARRATIVE: CASE EVENT DATE: 20240701
